FAERS Safety Report 26066431 (Version 1)
Quarter: 2025Q4

REPORT INFORMATION
  Report Type: Spontaneous
  Country: US (occurrence: US)
  Receive Date: 20251119
  Receipt Date: 20251119
  Transmission Date: 20260117
  Serious: No
  Sender: NOVO NORDISK
  Company Number: US-NOVOPROD-1363874

PATIENT
  Sex: Male

DRUGS (1)
  1. NOVOLOG [Suspect]
     Active Substance: INSULIN ASPART
     Indication: Type 1 diabetes mellitus
     Dosage: SLIDING SCALE INJECTED BEFORE EACH MEAL
     Route: 058
     Dates: start: 2010

REACTIONS (3)
  - Insulin resistance [Unknown]
  - Blood glucose increased [Unknown]
  - Product information content complaint [Unknown]
